FAERS Safety Report 6073767-7 (Version None)
Quarter: 2009Q1

REPORT INFORMATION
  Report Type: 
  Country: None (occurrence: None)
  Receive Date: 20090209
  Receipt Date: 20090209
  Transmission Date: 20090719
  Serious: Yes (Hospitalization)
  Sender: FDA-Public Use
  Company Number: None

PATIENT
  Age: 63 Year
  Sex: Female

DRUGS (2)
  1. MELPHALAN 180 MG/M2 [Suspect]
     Indication: NON-HODGKIN'S LYMPHOMA
     Dosage: 180 MG/M2 ONCE IV
     Route: 042
     Dates: start: 20051205
  2. AMIFOSTINE [Suspect]
     Indication: NON-HODGKIN'S LYMPHOMA
     Dosage: 740 MG/M2 DAILY IV
     Route: 042
     Dates: start: 20051129, end: 20051205

REACTIONS (4)
  - CENTRAL LINE INFECTION [None]
  - ENTEROBACTER INFECTION [None]
  - ESCHERICHIA INFECTION [None]
  - FATIGUE [None]
